FAERS Safety Report 6420177-6 (Version None)
Quarter: 2009Q4

REPORT INFORMATION
  Report Type: 
  Country: None (occurrence: None)
  Receive Date: 20091029
  Receipt Date: 20091019
  Transmission Date: 20100525
  Serious: Yes (Other)
  Sender: FDA-Public Use
  Company Number: US-JNJFOC-20090907947

PATIENT
  Sex: Female
  Weight: 19.5 kg

DRUGS (3)
  1. CHILDREN'S TYLENOL PLUS COUGH + RUNNY NOSE CHERRY [Suspect]
     Indication: PYREXIA
     Dosage: 10ML, EVERY 4-6 HOURS, UP TO 4 TO 5 TIMES PER DAY.
     Dates: start: 20090916, end: 20090926
  2. CHILDREN'S MOTRIN [Concomitant]
     Indication: PYREXIA
     Dosage: 200 MG 2-4 TIMES A DAY
  3. ALBUTEROL [Concomitant]
     Indication: ASTHMA
     Dosage: 25 MG TWICE A DAY AS NEEDED

REACTIONS (6)
  - CHEST PAIN [None]
  - DYSPNOEA [None]
  - EPISTAXIS [None]
  - HAEMATEMESIS [None]
  - TRANSMISSION OF AN INFECTIOUS AGENT VIA A MEDICINAL PRODUCT [None]
  - WEIGHT DECREASED [None]
